FAERS Safety Report 11940585 (Version 1)
Quarter: 2016Q1

REPORT INFORMATION
  Report Type: Spontaneous
  Country: US (occurrence: US)
  Receive Date: 20160122
  Receipt Date: 20160122
  Transmission Date: 20160526
  Serious: Yes (Hospitalization, Other)
  Sender: FDA-Public Use
  Company Number: US-DSJP-DSU-2015-133574

PATIENT

DRUGS (3)
  1. BENICAR HCT [Suspect]
     Active Substance: HYDROCHLOROTHIAZIDE\OLMESARTAN MEDOXOMIL
     Indication: HYPERTENSION
     Dosage: 20/12.5 MG ONCE DAILY
     Route: 048
     Dates: start: 2007, end: 2014
  2. IBUPROFEN. [Concomitant]
     Active Substance: IBUPROFEN
     Indication: PRODUCT USED FOR UNKNOWN INDICATION
     Dosage: UNK
     Dates: start: 2013
  3. ALEVE [Concomitant]
     Active Substance: NAPROXEN SODIUM
     Indication: PRODUCT USED FOR UNKNOWN INDICATION
     Dosage: UNK
     Dates: start: 2005

REACTIONS (13)
  - Gastric ulcer [Unknown]
  - Renal cyst [Unknown]
  - Acute kidney injury [Unknown]
  - Hiatus hernia [Unknown]
  - Dizziness [Recovered/Resolved]
  - Dyspnoea [Unknown]
  - Lactose intolerance [Recovered/Resolved]
  - Diverticulitis [Recovered/Resolved]
  - Umbilical hernia [Unknown]
  - Bladder disorder [Unknown]
  - Diverticulum intestinal [Unknown]
  - Malabsorption [Recovered/Resolved]
  - Faecal volume increased [Unknown]

NARRATIVE: CASE EVENT DATE: 2007
